FAERS Safety Report 6050766-2 (Version None)
Quarter: 2009Q1

REPORT INFORMATION
  Report Type: 
  Country: None (occurrence: None)
  Receive Date: 20090121
  Receipt Date: 20090121
  Transmission Date: 20090719
  Serious: Yes (Hospitalization)
  Sender: FDA-Public Use
  Company Number: None

PATIENT
  Sex: Male
  Weight: 99.3377 kg

DRUGS (1)
  1. FELBATOL [Suspect]
     Indication: CONVULSION
     Dosage: 1600MG TID PO
     Route: 048
     Dates: start: 20070301

REACTIONS (4)
  - ASTHENIA [None]
  - CONVULSION [None]
  - DYSSTASIA [None]
  - PANCYTOPENIA [None]
